FAERS Safety Report 6648271-5 (Version None)
Quarter: 2010Q1

REPORT INFORMATION
  Report Type: 
  Country: None (occurrence: None)
  Receive Date: 20100318
  Receipt Date: 20100310
  Transmission Date: 20100710
  Serious: Yes (Death)
  Sender: FDA-Public Use
  Company Number: 1000012377

PATIENT

DRUGS (1)
  1. NAMENDA [Suspect]
     Dosage: ORAL
     Route: 048

REACTIONS (1)
  - HYPONATRAEMIA [None]
